FAERS Safety Report 5933450-2 (Version None)
Quarter: 2008Q4

REPORT INFORMATION
  Report Type: 
  Country: None (occurrence: None)
  Receive Date: 20081022
  Receipt Date: 20080827
  Transmission Date: 20090506
  Serious: Yes (Other)
  Sender: FDA-Public Use
  Company Number: US-WYE-H06420808

PATIENT
  Sex: Female

DRUGS (1)
  1. ROBITUSSIN COUGH LONG ACTING (DEXTROMETHORPHAN HYDROBROMIDE, SYRUP) [Suspect]
     Indication: DRUG USE FOR UNKNOWN INDICATION

REACTIONS (4)
  - DRUG DEPENDENCE [None]
  - GENERAL PHYSICAL CONDITION ABNORMAL [None]
  - MENTAL DISORDER [None]
  - REFUSAL OF TREATMENT BY PATIENT [None]
